FAERS Safety Report 16164700 (Version 1)
Quarter: 2019Q2

REPORT INFORMATION
  Report Type: Report from Study
  Country: RU (occurrence: RU)
  Receive Date: 20190405
  Receipt Date: 20190405
  Transmission Date: 20190711
  Serious: Yes (Other)
  Sender: FDA-Public Use
  Company Number: RU-ASTRAZENECA-2019SE52354

PATIENT

DRUGS (11)
  1. NAVELBINE [Concomitant]
     Active Substance: VINORELBINE TARTRATE
  2. TAMOXIFEN [Concomitant]
     Active Substance: TAMOXIFEN
  3. GEMCITABINE [Concomitant]
     Active Substance: GEMCITABINE\GEMCITABINE HYDROCHLORIDE
  4. CARBOPLATIN. [Concomitant]
     Active Substance: CARBOPLATIN
  5. CAPECITABINE. [Concomitant]
     Active Substance: CAPECITABINE
  6. PACLITAXEL. [Concomitant]
     Active Substance: PACLITAXEL
  7. CARBOPLATINE [Concomitant]
     Active Substance: CARBOPLATIN
  8. TRASTUZUMAB. [Concomitant]
     Active Substance: TRASTUZUMAB
  9. ANASTROZOLE. [Concomitant]
     Active Substance: ANASTROZOLE
     Dates: start: 201607
  10. FASLODEX [Suspect]
     Active Substance: FULVESTRANT
     Route: 030
  11. PERTUZUMAB. [Concomitant]
     Active Substance: PERTUZUMAB

REACTIONS (5)
  - Metastases to bone marrow [Unknown]
  - Haematotoxicity [Unknown]
  - Drug intolerance [Unknown]
  - Metastases to liver [Unknown]
  - Malignant neoplasm progression [Unknown]

NARRATIVE: CASE EVENT DATE: 2014
